FAERS Safety Report 7649441-X (Version None)
Quarter: 2011Q3

REPORT INFORMATION
  Report Type: 
  Country: None (occurrence: None)
  Receive Date: 20110802
  Receipt Date: 20110728
  Transmission Date: 20111222
  Serious: Yes (Death)
  Sender: FDA-Public Use
  Company Number: FR-ASTELLAS-2011EU004547

PATIENT
  Sex: Male
  Weight: 64 kg

DRUGS (6)
  1. NEXIUM [Concomitant]
     Indication: PROPHYLAXIS AGAINST GASTROINTESTINAL ULCER
     Dosage: 40 MG, UNKNOWN/D
     Route: 042
     Dates: start: 20101009, end: 20101130
  2. TIGECYCLINE [Concomitant]
     Indication: SEPTIC SHOCK
     Dosage: 100 MG, BID
     Route: 042
     Dates: start: 20101118, end: 20101122
  3. NOREPINEPHRINE BITARTRATE [Concomitant]
     Indication: SHOCK
     Dosage: 1 MG, OTHER
     Route: 042
     Dates: start: 20101118, end: 20101119
  4. MICAFUNGIN INJECTION [Suspect]
     Indication: SYSTEMIC CANDIDA
     Dosage: 100 MG, UNKNOWN/D
     Route: 042
     Dates: start: 20101118, end: 20101121
  5. CEFTAZIDIME SODIUM [Concomitant]
     Indication: SEPTIC SHOCK
     Dosage: 6 G, UNKNOWN/D
     Route: 042
     Dates: start: 20101118, end: 20101122
  6. CASPOFUNGIN ACETATE [Concomitant]
     Indication: ANTIFUNGAL TREATMENT
     Dosage: 50 MG, UNKNOWN/D
     Route: 065
     Dates: start: 20101012, end: 20101017

REACTIONS (4)
  - SEPTIC SHOCK [None]
  - MULTI-ORGAN FAILURE [None]
  - DRUG INEFFECTIVE [None]
  - CARDIOGENIC SHOCK [None]
